FAERS Safety Report 7088384-X (Version None)
Quarter: 2010Q4

REPORT INFORMATION
  Report Type: 
  Country: None (occurrence: None)
  Receive Date: 20101108
  Receipt Date: 20101028
  Transmission Date: 20110411
  Serious: Yes (Hospitalization)
  Sender: FDA-Public Use
  Company Number: CH-ASTRAZENECA-2010SE51641

PATIENT
  Age: 73 Year
  Sex: Male

DRUGS (5)
  1. NEXIUM [Suspect]
     Route: 048
  2. CORDARONE [Suspect]
     Route: 048
  3. CIPRALEX [Suspect]
     Route: 048
  4. SOMNIUM [Concomitant]
  5. CRESTOR [Concomitant]

REACTIONS (1)
  - HAEMOLYTIC ANAEMIA [None]
